FAERS Safety Report 18523726 (Version 1)
Quarter: 2020Q4

REPORT INFORMATION
  Report Type: Spontaneous
  Country: ZA (occurrence: ZA)
  Receive Date: 20201119
  Receipt Date: 20201119
  Transmission Date: 20210114
  Serious: Yes (Other)
  Sender: FDA-Public Use
  Company Number: ZA-BAXTER-2020BAX023538

PATIENT
  Age: 56 Year
  Sex: Male

DRUGS (2)
  1. CISPLATIN. [Suspect]
     Active Substance: CISPLATIN
     Indication: THYROID CANCER
     Route: 065
     Dates: start: 201909
  2. DOXIL [Suspect]
     Active Substance: DOXORUBICIN HYDROCHLORIDE
     Indication: THYROID CANCER
     Route: 030
     Dates: start: 201909

REACTIONS (2)
  - Adverse event [Unknown]
  - Disease progression [Unknown]
